FAERS Safety Report 7133975-0 (Version None)
Quarter: 2010Q4

REPORT INFORMATION
  Report Type: 
  Country: None (occurrence: None)
  Receive Date: 20101203
  Receipt Date: 20101118
  Transmission Date: 20110411
  Serious: Yes (Other)
  Sender: FDA-Public Use
  Company Number: CA-JNJFOC-20101108012

PATIENT
  Sex: Female

DRUGS (2)
  1. NEMASOLE [Suspect]
     Indication: HOOKWORM INFECTION
     Route: 065
  2. IRON SUPPLEMENTS [Suspect]
     Indication: MEDICAL DIET
     Route: 065

REACTIONS (3)
  - DRUG EXPOSURE DURING PREGNANCY [None]
  - INTRA-UTERINE DEATH [None]
  - PREMATURE LABOUR [None]
